FAERS Safety Report 12860568 (Version 1)
Quarter: 2016Q4

REPORT INFORMATION
  Report Type: Spontaneous
  Country: IT (occurrence: IT)
  Receive Date: 20161019
  Receipt Date: 20161019
  Transmission Date: 20170207
  Serious: Yes (Other)
  Sender: FDA-Public Use
  Company Number: IT-PFIZER INC-2016479267

PATIENT
  Age: 5 Year
  Sex: Female

DRUGS (5)
  1. VINCRISTINE SULPHATE [Concomitant]
     Active Substance: VINCRISTINE SULFATE
  2. DEXAMETHASONE PHOSPHATE [Concomitant]
     Active Substance: DEXAMETHASONE PHOSPHATE
  3. PREDNISONE. [Concomitant]
     Active Substance: PREDNISONE
  4. ASPARAGINE [Concomitant]
     Active Substance: ASPARAGINE
  5. ADRIBLASTINA [Suspect]
     Active Substance: DOXORUBICIN HYDROCHLORIDE
     Indication: ACUTE LYMPHOCYTIC LEUKAEMIA
     Dosage: 30 MG/M2 OF BODY SURFACE, CYCLIC
     Route: 042
     Dates: start: 20141126, end: 20141217

REACTIONS (1)
  - Atrioventricular conduction time shortened [Unknown]

NARRATIVE: CASE EVENT DATE: 20160831
